FAERS Safety Report 12856783 (Version 3)
Quarter: 2017Q2

REPORT INFORMATION
  Report Type: Spontaneous
  Country: US (occurrence: US)
  Receive Date: 20161018
  Receipt Date: 20170403
  Transmission Date: 20170830
  Serious: No
  Sender: FDA-Public Use
  Company Number: US-PFIZER INC-2016482928

PATIENT
  Age: 67 Year
  Sex: Female

DRUGS (14)
  1. CODEINE [Suspect]
     Active Substance: CODEINE
     Dosage: UNK
  2. PATANOL [Suspect]
     Active Substance: OLOPATADINE HYDROCHLORIDE
     Dosage: UNK
  3. BETADINE [Suspect]
     Active Substance: POVIDONE-IODINE
     Dosage: UNK
  4. SUCCINYLCHOLINE CHLORIDE. [Suspect]
     Active Substance: SUCCINYLCHOLINE CHLORIDE
     Dosage: UNK
  5. ASA [Suspect]
     Active Substance: ASPIRIN
     Dosage: UNK
  6. TALWIN [Suspect]
     Active Substance: PENTAZOCINE LACTATE
     Dosage: UNK
  7. TOPROL XL [Suspect]
     Active Substance: METOPROLOL SUCCINATE
     Dosage: UNK
  8. ERYTHROMYCIN. [Suspect]
     Active Substance: ERYTHROMYCIN
     Dosage: UNK
  9. LASIX [Suspect]
     Active Substance: FUROSEMIDE
     Dosage: UNK
  10. LISINOPRIL. [Suspect]
     Active Substance: LISINOPRIL
     Dosage: UNK
  11. CARDIZEM [Suspect]
     Active Substance: DILTIAZEM HYDROCHLORIDE
     Dosage: UNK
  12. DIOVAN [Suspect]
     Active Substance: VALSARTAN
     Dosage: UNK
  13. LOTENSIN [Suspect]
     Active Substance: BENAZEPRIL HYDROCHLORIDE
     Dosage: UNK
  14. WELLBUTRIN [Suspect]
     Active Substance: BUPROPION HYDROCHLORIDE
     Dosage: UNK

REACTIONS (1)
  - Drug hypersensitivity [Unknown]
